FAERS Safety Report 16067489 (Version 3)
Quarter: 2019Q3

REPORT INFORMATION
  Report Type: Report from Study
  Country: JP (occurrence: JP)
  Receive Date: 20190313
  Receipt Date: 20190807
  Transmission Date: 20191004
  Serious: Yes (Life-Threatening, Hospitalization)
  Sender: FDA-Public Use
  Company Number: JP-TAKEDA-2019TUS013658

PATIENT
  Age: 77 Year
  Sex: Female
  Weight: 53.5 kg

DRUGS (15)
  1. CYTARABINE. [Suspect]
     Active Substance: CYTARABINE
     Indication: ACUTE MYELOID LEUKAEMIA
     Dosage: 29.8 MILLIGRAM, QD
     Route: 065
     Dates: start: 20181003, end: 20181016
  2. VANCOMYCIN                         /00314402/ [Suspect]
     Active Substance: VANCOMYCIN
     Indication: FEBRILE NEUTROPENIA
     Dosage: 1 GRAM, BID
     Route: 065
     Dates: start: 20181018, end: 20181024
  3. ITRIZOLE [Concomitant]
     Active Substance: ITRACONAZOLE
     Indication: PROPHYLAXIS
     Dosage: 20 MILLILITER, QD
     Route: 048
     Dates: start: 20181005, end: 20181022
  4. ZOSYN [Concomitant]
     Active Substance: PIPERACILLIN SODIUM\TAZOBACTAM SODIUM
     Indication: FEBRILE NEUTROPENIA
     Dosage: 4.5 GRAM, TID
     Route: 065
     Dates: start: 20181015, end: 20181022
  5. TAKEPRON [Concomitant]
     Active Substance: LANSOPRAZOLE
     Indication: PROPHYLAXIS
     Dosage: 30 MILLIGRAM, BID
     Route: 065
     Dates: start: 20181026
  6. ACLARUBICIN HYDROCHLORIDE [Suspect]
     Active Substance: ACLARUBICIN HYDROCHLORIDE
     Indication: ACUTE MYELOID LEUKAEMIA
     Dosage: 20 MILLIGRAM, QD
     Route: 065
     Dates: start: 20181003, end: 20181006
  7. TEICOPLANIN [Concomitant]
     Active Substance: TEICOPLANIN
     Indication: FEBRILE NEUTROPENIA
     Dosage: 400 MILLIGRAM, BID
     Route: 065
     Dates: start: 20181024, end: 20181025
  8. GRANISETRON [Concomitant]
     Active Substance: GRANISETRON
     Indication: PROPHYLAXIS
     Dosage: 1 MILLIGRAM, QD
     Route: 065
     Dates: start: 20181003, end: 20181006
  9. MEROPENEM. [Concomitant]
     Active Substance: MEROPENEM
     Indication: FEBRILE NEUTROPENIA
     Dosage: 1 GRAM, TID
     Route: 065
     Dates: start: 20181022, end: 20181024
  10. FEBUXOSTAT. [Suspect]
     Active Substance: FEBUXOSTAT
     Indication: TUMOUR LYSIS SYNDROME
     Dosage: 40 MILLIGRAM, QD
     Route: 048
     Dates: start: 20181002, end: 20181025
  11. FUNGUARD [Concomitant]
     Active Substance: MICAFUNGIN SODIUM
     Indication: FEBRILE NEUTROPENIA
     Dosage: 150 MILLIGRAM, QD
     Route: 065
     Dates: start: 20181023, end: 20181025
  12. TAKECAB [Concomitant]
     Active Substance: VONOPRAZAN FUMURATE
     Indication: PROPHYLAXIS
     Dosage: 20 MILLIGRAM, QD
     Route: 048
     Dates: start: 20181002, end: 20181025
  13. MAXIPIME [Concomitant]
     Active Substance: CEFEPIME HYDROCHLORIDE
     Indication: FEBRILE NEUTROPENIA
     Dosage: 2 GRAM, BID
     Route: 065
     Dates: start: 20181002, end: 20181015
  14. OXIFAST [Concomitant]
     Active Substance: OXYCODONE
     Indication: DYSPNOEA
     Dosage: 4.8 MILLIGRAM, QD
     Route: 065
     Dates: start: 20181024
  15. NALDEMEDINE TOSILATE [Concomitant]
     Active Substance: NALDEMEDINE TOSYLATE
     Indication: CONSTIPATION
     Dosage: 0.2 MILLIGRAM, QD
     Route: 048
     Dates: start: 20181028

REACTIONS (5)
  - Nephropathy toxic [Not Recovered/Not Resolved]
  - Platelet count decreased [Recovering/Resolving]
  - Oral herpes [Recovering/Resolving]
  - Atrial fibrillation [Not Recovered/Not Resolved]
  - Anaemia [Not Recovered/Not Resolved]

NARRATIVE: CASE EVENT DATE: 20181002
